FAERS Safety Report 7475045-8 (Version None)
Quarter: 2011Q2

REPORT INFORMATION
  Report Type: 
  Country: None (occurrence: None)
  Receive Date: 20110512
  Receipt Date: 20110428
  Transmission Date: 20111010
  Serious: Yes (Other)
  Sender: FDA-Public Use
  Company Number: US-JNJFOC-20110500348

PATIENT
  Sex: Male
  Weight: 99.79 kg

DRUGS (2)
  1. IRON [Concomitant]
     Indication: ANAEMIA
     Route: 048
  2. REMICADE [Suspect]
     Indication: CROHN'S DISEASE
     Route: 042

REACTIONS (6)
  - SKIN HYPERTROPHY [None]
  - SCROTAL SWELLING [None]
  - PENILE OEDEMA [None]
  - SCROTAL VARICOSE VEINS [None]
  - HYDROCELE [None]
  - SCROTAL OEDEMA [None]
